FAERS Safety Report 17802174 (Version 6)
Quarter: 2021Q3

REPORT INFORMATION
  Report Type: Spontaneous
  Country: US (occurrence: US)
  Receive Date: 20200519
  Receipt Date: 20210830
  Transmission Date: 20211014
  Serious: No
  Sender: FDA-Public Use
  Company Number: US-PFIZER INC-2020196558

PATIENT
  Age: 69 Year

DRUGS (1)
  1. PREMARIN [Suspect]
     Active Substance: ESTROGENS, CONJUGATED
     Dosage: UNK, 2X/WEEK
     Route: 067

REACTIONS (5)
  - Dry skin [Unknown]
  - Atrophy [Unknown]
  - Cystocele [Unknown]
  - Intentional product misuse [Unknown]
  - Discomfort [Unknown]
